FAERS Safety Report 20737838 (Version 1)
Quarter: 2022Q2

REPORT INFORMATION
  Report Type: Spontaneous
  Country: US (occurrence: US)
  Receive Date: 20220422
  Receipt Date: 20220422
  Transmission Date: 20220721
  Serious: Yes (Other)
  Sender: FDA-Public Use
  Company Number: US-TOLMAR, INC.-22US034137

PATIENT
  Age: 62 Year
  Sex: Female

DRUGS (2)
  1. ELIGARD [Suspect]
     Active Substance: LEUPROLIDE ACETATE
     Indication: Intravenous leiomyomatosis
     Dosage: UNK
  2. LETROZOLE [Suspect]
     Active Substance: LETROZOLE
     Indication: Intravenous leiomyomatosis
     Dosage: UNK

REACTIONS (4)
  - Vena cava thrombosis [Recovering/Resolving]
  - Pulmonary hypertension [Recovering/Resolving]
  - Abdominal pain lower [Recovering/Resolving]
  - Drug ineffective for unapproved indication [Recovering/Resolving]
